FAERS Safety Report 7118815-8 (Version None)
Quarter: 2010Q4

REPORT INFORMATION
  Report Type: 
  Country: None (occurrence: None)
  Receive Date: 20101123
  Receipt Date: 20100924
  Transmission Date: 20110411
  Serious: No
  Sender: FDA-Public Use
  Company Number: US-KINGPHARMUSA00001-K201001204

PATIENT
  Age: 79 Year
  Sex: Female
  Weight: 58.957 kg

DRUGS (3)
  1. FLECTOR [Suspect]
     Indication: PAIN IN EXTREMITY
     Dosage: 1 PATCH, SINGLE, APPLIED TO ARM
     Route: 061
     Dates: start: 20100922, end: 20100922
  2. FLECTOR [Suspect]
     Dosage: 1 PATCH, BID, APPLIED TO RIGHT LEG
     Route: 061
     Dates: start: 20100901, end: 20100901
  3. PREVACID [Concomitant]
     Indication: ABDOMINAL DISCOMFORT
     Dosage: UNK, QD

REACTIONS (3)
  - APPLICATION SITE DISCOLOURATION [None]
  - APPLICATION SITE PAIN [None]
  - DRUG ADMINISTERED AT INAPPROPRIATE SITE [None]
